FAERS Safety Report 14936999 (Version 1)
Quarter: 2018Q2

REPORT INFORMATION
  Report Type: Spontaneous
  Country: DE (occurrence: DE)
  Receive Date: 20180525
  Receipt Date: 20180525
  Transmission Date: 20180711
  Serious: Yes (Hospitalization)
  Sender: FDA-Public Use
  Company Number: DE-TEVA-2018-DE-895005

PATIENT
  Age: 25 Year
  Sex: Male

DRUGS (3)
  1. FLUPENTIXOL [Concomitant]
     Active Substance: FLUPENTIXOL
     Indication: HALLUCINATION, AUDITORY
     Dosage: 10MG
     Route: 065
  2. CLOZAPINE. [Suspect]
     Active Substance: CLOZAPINE
     Indication: HALLUCINATION, AUDITORY
     Dosage: 900MG; FURTHER TAPERED OFF IN SIX STEPS; DOSE REDUCED BY 150 MG/DAY IN EACH STEP
     Route: 065
  3. AMISULPRIDE [Concomitant]
     Active Substance: AMISULPRIDE
     Indication: HALLUCINATION, AUDITORY
     Dosage: 800MG
     Route: 065

REACTIONS (3)
  - Cardiac failure [Recovered/Resolved]
  - Electrocardiogram QT prolonged [Recovered/Resolved]
  - Congestive cardiomyopathy [Recovered/Resolved]
